FAERS Safety Report 4850072-5 (Version None)
Quarter: 2005Q4

REPORT INFORMATION
  Report Type: 
  Country: None (occurrence: None)
  Receive Date: 20051107
  Receipt Date: 20050330
  Transmission Date: 20060501
  Serious: Yes (Other)
  Sender: FDA-Public Use
  Company Number: PHEH2005US03746

PATIENT
  Age: 60 Year
  Sex: Female

DRUGS (5)
  1. ESTRADERM [Suspect]
     Indication: HORMONE REPLACEMENT THERAPY
     Dosage: TRANSDERMAL
     Route: 062
     Dates: start: 19800101, end: 19990101
  2. PREMPRO [Suspect]
  3. PROVERA [Suspect]
  4. CYCRIN [Suspect]
  5. MEDROXYPROGESTERONE ACETATE [Suspect]

REACTIONS (2)
  - BREAST CANCER IN SITU [None]
  - MASTECTOMY [None]
